FAERS Safety Report 8854590 (Version 1)
Quarter: 2012Q4

REPORT INFORMATION
  Report Type: 
  Country: DE (occurrence: DE)
  Receive Date: 20121023
  Receipt Date: 20121023
  Transmission Date: 20130627
  Serious: Yes (Other)
  Sender: FDA-Public Use
  Company Number: DE-TEVA-365806GER

PATIENT
  Age: 31 Year
  Sex: Female
  Weight: 150 kg

DRUGS (6)
  1. METFORMIN [Suspect]
     Indication: TYPE 2 DIABETES MELLITUS
     Dosage: dosage unknown
     Route: 048
     Dates: start: 20090709, end: 20100126
  2. RAMIPRIL [Suspect]
     Indication: HYPERTENSION
     Dosage: dosage unknown
     Route: 048
     Dates: start: 20090709, end: 20100126
  3. METOPROLOL [Suspect]
     Indication: HYPERTENSION
     Dosage: dosage unknown
     Route: 048
     Dates: start: 20090709, end: 20100126
  4. METHYLDOPA [Suspect]
     Indication: HYPERTENSION
     Dosage: 750 Milligram Daily;
     Route: 048
     Dates: start: 20100126, end: 20120210
  5. NOVORAPID [Suspect]
     Indication: TYPE 2 DIABETES MELLITUS
     Dosage: 52 IU (International Unit) Daily;
     Route: 058
     Dates: start: 20100126, end: 20120210
  6. PROTAPHANE [Suspect]
     Indication: TYPE 2 DIABETES MELLITUS
     Dosage: 30 IU (International Unit) Daily;
     Route: 058
     Dates: start: 20100126, end: 20120210

REACTIONS (3)
  - HELLP syndrome [Unknown]
  - Caesarean section [None]
  - Exposure during pregnancy [None]
